FAERS Safety Report 6659613-9 (Version None)
Quarter: 2010Q1

REPORT INFORMATION
  Report Type: 
  Country: None (occurrence: None)
  Receive Date: 20100330
  Receipt Date: 20100318
  Transmission Date: 20100710
  Serious: Yes (Other)
  Sender: FDA-Public Use
  Company Number: GB-PFIZER INC-2010034656

PATIENT
  Age: 45 Year

DRUGS (2)
  1. CHAMPIX [Suspect]
     Indication: SMOKING CESSATION THERAPY
     Dosage: 1 G UNIT DOSE
     Route: 048
     Dates: start: 20091201
  2. CERAZETTE [Concomitant]
     Indication: CONTRACEPTION
     Dosage: 75 UG UNIT DOSE
     Route: 048

REACTIONS (2)
  - ALOPECIA [None]
  - DEPRESSED MOOD [None]
